FAERS Safety Report 17065454 (Version 2)
Quarter: 2019Q4

REPORT INFORMATION
  Report Type: Report from Study
  Country: JP (occurrence: JP)
  Receive Date: 20191122
  Receipt Date: 20191209
  Transmission Date: 20200122
  Serious: Yes (Death, Other)
  Sender: FDA-Public Use
  Company Number: JP-GLAXOSMITHKLINE-JP2019JPN207605

PATIENT
  Age: 71 Year
  Sex: Female
  Weight: 40 kg

DRUGS (33)
  1. BLINDED PLACEBO [Suspect]
     Active Substance: INVESTIGATIONAL PRODUCT
     Indication: AMYOTROPHIC LATERAL SCLEROSIS
     Dosage: 2 MG, 1D
     Route: 048
     Dates: start: 20190610, end: 2019
  2. BLINDED ROPINIROLE HYDROCHLORIDE [Suspect]
     Active Substance: ROPINIROLE HYDROCHLORIDE
     Indication: AMYOTROPHIC LATERAL SCLEROSIS
     Dosage: 2 MG, 1D
     Route: 048
     Dates: start: 20190610, end: 2019
  3. BLINDED ROPINIROLE HYDROCHLORIDE [Suspect]
     Active Substance: ROPINIROLE HYDROCHLORIDE
     Dosage: 4 MG, 1D
     Route: 048
     Dates: start: 2019, end: 2019
  4. BLINDED PLACEBO [Suspect]
     Active Substance: INVESTIGATIONAL PRODUCT
     Dosage: 8 MG, 1D
     Route: 048
     Dates: start: 2019, end: 2019
  5. BLINDED ROPINIROLE HYDROCHLORIDE [Suspect]
     Active Substance: ROPINIROLE HYDROCHLORIDE
     Dosage: 14 MG, 1D
     Route: 048
     Dates: start: 2019, end: 2019
  6. BLINDED PLACEBO [Suspect]
     Active Substance: INVESTIGATIONAL PRODUCT
     Dosage: 16 MG, 1D
     Route: 048
     Dates: start: 20190801, end: 20191113
  7. BLINDED PLACEBO [Suspect]
     Active Substance: INVESTIGATIONAL PRODUCT
     Dosage: 14 MG, 1D
     Route: 048
     Dates: start: 2019, end: 2019
  8. BLINDED PLACEBO [Suspect]
     Active Substance: INVESTIGATIONAL PRODUCT
     Dosage: 6 MG, 1D
     Route: 048
     Dates: start: 2019, end: 2019
  9. BLINDED PLACEBO [Suspect]
     Active Substance: INVESTIGATIONAL PRODUCT
     Dosage: 6 MG, 1D
     Route: 048
     Dates: start: 2019, end: 2019
  10. BLINDED PLACEBO [Suspect]
     Active Substance: INVESTIGATIONAL PRODUCT
     Dosage: 12 MG, 1D
     Route: 048
     Dates: start: 2019, end: 2019
  11. BLINDED PLACEBO [Suspect]
     Active Substance: INVESTIGATIONAL PRODUCT
     Dosage: 12 MG, 1D
     Route: 048
     Dates: start: 2019, end: 2019
  12. BLINDED ROPINIROLE HYDROCHLORIDE [Suspect]
     Active Substance: ROPINIROLE HYDROCHLORIDE
     Dosage: 12 MG, 1D
     Route: 048
     Dates: start: 2019, end: 2019
  13. BLINDED ROPINIROLE HYDROCHLORIDE [Suspect]
     Active Substance: ROPINIROLE HYDROCHLORIDE
     Dosage: 14 MG, 1D
     Route: 048
     Dates: start: 2019, end: 2019
  14. BLINDED PLACEBO [Suspect]
     Active Substance: INVESTIGATIONAL PRODUCT
     Indication: AMYOTROPHIC LATERAL SCLEROSIS
     Dosage: 2 MG, 1D
     Route: 048
     Dates: start: 20190610, end: 2019
  15. BLINDED PLACEBO [Suspect]
     Active Substance: INVESTIGATIONAL PRODUCT
     Dosage: 4 MG, 1D
     Route: 048
     Dates: start: 2019, end: 2019
  16. BLINDED ROPINIROLE HYDROCHLORIDE [Suspect]
     Active Substance: ROPINIROLE HYDROCHLORIDE
     Dosage: 8 MG, 1D
     Route: 048
     Dates: start: 2019, end: 2019
  17. BLINDED ROPINIROLE HYDROCHLORIDE [Suspect]
     Active Substance: ROPINIROLE HYDROCHLORIDE
     Dosage: 12 MG, 1D
     Route: 048
     Dates: start: 2019, end: 2019
  18. BLINDED ROPINIROLE HYDROCHLORIDE [Suspect]
     Active Substance: ROPINIROLE HYDROCHLORIDE
     Dosage: 16 MG, 1D
     Route: 048
     Dates: start: 20190801, end: 20191113
  19. BLINDED ROPINIROLE HYDROCHLORIDE [Suspect]
     Active Substance: ROPINIROLE HYDROCHLORIDE
     Indication: AMYOTROPHIC LATERAL SCLEROSIS
     Dosage: 2 MG, 1D
     Route: 048
     Dates: start: 20190610, end: 2019
  20. BLINDED ROPINIROLE HYDROCHLORIDE [Suspect]
     Active Substance: ROPINIROLE HYDROCHLORIDE
     Dosage: 4 MG, 1D
     Route: 048
     Dates: start: 2019, end: 2019
  21. BLINDED PLACEBO [Suspect]
     Active Substance: INVESTIGATIONAL PRODUCT
     Dosage: 10 MG, 1D
     Route: 048
     Dates: start: 2019, end: 2019
  22. BLINDED ROPINIROLE HYDROCHLORIDE [Suspect]
     Active Substance: ROPINIROLE HYDROCHLORIDE
     Dosage: 10 MG, 1D
     Route: 048
     Dates: start: 2019, end: 2019
  23. BLINDED ROPINIROLE HYDROCHLORIDE [Suspect]
     Active Substance: ROPINIROLE HYDROCHLORIDE
     Dosage: 6 MG, 1D
     Route: 048
     Dates: start: 2019, end: 2019
  24. BLINDED PLACEBO [Suspect]
     Active Substance: INVESTIGATIONAL PRODUCT
     Dosage: 10 MG, 1D
     Route: 048
     Dates: start: 2019, end: 2019
  25. BLINDED PLACEBO [Suspect]
     Active Substance: INVESTIGATIONAL PRODUCT
     Dosage: 14 MG, 1D
     Route: 048
     Dates: start: 2019, end: 2019
  26. BLINDED ROPINIROLE HYDROCHLORIDE [Suspect]
     Active Substance: ROPINIROLE HYDROCHLORIDE
     Dosage: 16 MG, 1D
     Route: 048
     Dates: start: 20190801, end: 20191113
  27. BLINDED PLACEBO [Suspect]
     Active Substance: INVESTIGATIONAL PRODUCT
     Dosage: 8 MG, 1D
     Route: 048
     Dates: start: 2019, end: 2019
  28. BLINDED PLACEBO [Suspect]
     Active Substance: INVESTIGATIONAL PRODUCT
     Dosage: 16 MG, 1D
     Route: 048
     Dates: start: 20190801, end: 20191113
  29. BLINDED PLACEBO [Suspect]
     Active Substance: INVESTIGATIONAL PRODUCT
     Dosage: 4 MG, 1D
     Route: 048
     Dates: start: 2019, end: 2019
  30. BLINDED ROPINIROLE HYDROCHLORIDE [Suspect]
     Active Substance: ROPINIROLE HYDROCHLORIDE
     Dosage: 6 MG, 1D
     Route: 048
     Dates: start: 2019, end: 2019
  31. BLINDED ROPINIROLE HYDROCHLORIDE [Suspect]
     Active Substance: ROPINIROLE HYDROCHLORIDE
     Dosage: 8 MG, 1D
     Route: 048
     Dates: start: 2019, end: 2019
  32. BLINDED ROPINIROLE HYDROCHLORIDE [Suspect]
     Active Substance: ROPINIROLE HYDROCHLORIDE
     Dosage: 10 MG, 1D
     Route: 048
     Dates: start: 2019, end: 2019
  33. METHYCOBAL TABLET [Concomitant]
     Indication: AMYOTROPHIC LATERAL SCLEROSIS
     Dosage: 500 ?G, TID
     Dates: end: 20191113

REACTIONS (1)
  - Myocardial ischaemia [Fatal]

NARRATIVE: CASE EVENT DATE: 20191114
